FAERS Safety Report 5407834-5 (Version None)
Quarter: 2007Q3

REPORT INFORMATION
  Report Type: 
  Country: None (occurrence: None)
  Receive Date: 20070713
  Receipt Date: 20070504
  Transmission Date: 20080115
  Serious: No
  Sender: FDA-Public Use
  Company Number: 2007SP001655

PATIENT
  Age: 67 Year
  Sex: Male

DRUGS (4)
  1. LUNESTA [Suspect]
     Indication: INSOMNIA
     Dosage: 3 MG; HS; ORAL
     Route: 048
     Dates: start: 20070318, end: 20070101
  2. XANAX [Suspect]
     Dosage: ORAL
     Route: 048
  3. ALTACE [Concomitant]
  4. HYDROCHLOROTHIAZIDE [Concomitant]

REACTIONS (4)
  - INJURY [None]
  - MIDDLE INSOMNIA [None]
  - PARASOMNIA [None]
  - ROAD TRAFFIC ACCIDENT [None]
